FAERS Safety Report 4567399-7 (Version None)
Quarter: 2005Q1

REPORT INFORMATION
  Report Type: 
  Country: None (occurrence: None)
  Receive Date: 20050127
  Receipt Date: 20050120
  Transmission Date: 20050727
  Serious: Yes (Hospitalization, Other)
  Sender: FDA-Public Use
  Company Number: FRWYE357720JAN05

PATIENT
  Age: 72 Year
  Sex: Female

DRUGS (5)
  1. EFFEXOR XR [Suspect]
     Indication: DYSTHYMIC DISORDER
     Dosage: 37.5 MG 2X PER 1 DAY
     Route: 048
  2. AUGMENTIN ORAL (AMOXICILLIN TRIHYDRATE/CLAVULANATE POTASSIUM, , 0) [Suspect]
     Indication: BRONCHITIS ACUTE
     Route: 048
     Dates: start: 20041010, end: 20041026
  3. NISISCO (HYDROCHLOROTHIAZIDE/VALSARTAN, ,0) [Suspect]
     Indication: HYPERTENSION
     Route: 048
  4. PRAVASTATIN SODIUM (PRAVASTATIN SODIUM, ,0) [Suspect]
     Dosage: 1 DOSE 1X PER 1 DAY
     Route: 048
  5. XANAX [Suspect]
     Indication: DYSTHYMIC DISORDER
     Dosage: 0.25 MG 1X PER 1 DAY
     Route: 048

REACTIONS (1)
  - CLOSTRIDIUM COLITIS [None]
